FAERS Safety Report 16113118 (Version 1)
Quarter: 2019Q1

REPORT INFORMATION
  Report Type: Spontaneous
  Country: US (occurrence: US)
  Receive Date: 20190325
  Receipt Date: 20190325
  Transmission Date: 20190418
  Serious: Yes (Hospitalization)
  Sender: FDA-Public Use
  Company Number: US-PFIZER INC-2019124705

PATIENT
  Age: 40 Year
  Sex: Female
  Weight: 115.67 kg

DRUGS (4)
  1. GABAPENTIN. [Suspect]
     Active Substance: GABAPENTIN
     Indication: NEURALGIA
     Dosage: 300 MG, 3X/DAY
     Dates: start: 20190212
  2. SYNTHROID [Concomitant]
     Active Substance: LEVOTHYROXINE SODIUM
     Indication: THYROID DISORDER
     Dosage: 25 UG, 1X/DAY
  3. GABAPENTIN. [Suspect]
     Active Substance: GABAPENTIN
     Indication: SLEEP DISORDER
     Dosage: UNK, ^INCREASED AT BED TIME ^
     Dates: start: 2019, end: 2019
  4. GABAPENTIN. [Suspect]
     Active Substance: GABAPENTIN
     Dosage: 800 MG, 3X/DAY
     Dates: start: 2019

REACTIONS (5)
  - Abscess [Unknown]
  - Effusion [Unknown]
  - Mental disorder [Unknown]
  - Nerve injury [Unknown]
  - Drug ineffective for unapproved indication [Unknown]

NARRATIVE: CASE EVENT DATE: 20190212
